FAERS Safety Report 5835726-6 (Version None)
Quarter: 2008Q3

REPORT INFORMATION
  Report Type: 
  Country: None (occurrence: None)
  Receive Date: 20080806
  Receipt Date: 20080730
  Transmission Date: 20090109
  Serious: Yes (Death)
  Sender: FDA-Public Use
  Company Number: DE-SANOFI-SYNTHELABO-F04200800074

PATIENT
  Sex: Male

DRUGS (4)
  1. FOLINIC ACID [Suspect]
     Indication: GASTRIC CANCER
     Route: 041
     Dates: start: 20080716, end: 20080716
  2. FLUOROURACIL [Suspect]
     Indication: GASTRIC CANCER
     Route: 041
     Dates: start: 20080716, end: 20080716
  3. ELOXATIN [Suspect]
     Indication: GASTRIC CANCER
     Route: 041
     Dates: start: 20080716, end: 20080716
  4. TAXOTERE [Suspect]
     Indication: GASTRIC CANCER
     Route: 041
     Dates: start: 20080716, end: 20080716

REACTIONS (1)
  - MYOCARDIAL INFARCTION [None]
